FAERS Safety Report 9283099 (Version 1)
Quarter: 2013Q2

REPORT INFORMATION
  Report Type: Spontaneous
  Country: US (occurrence: US)
  Receive Date: 20130510
  Receipt Date: 20130510
  Transmission Date: 20140414
  Serious: No
  Sender: FDA-Public Use
  Company Number: US-GLAXOSMITHKLINE-A0980109A

PATIENT
  Age: 47 Year
  Sex: Female

DRUGS (6)
  1. TYKERB [Suspect]
     Indication: BREAST CANCER
     Dosage: 1000MG PER DAY
     Route: 048
     Dates: start: 20120501, end: 20120503
  2. NAVELBINE [Suspect]
     Indication: BREAST CANCER
     Route: 042
     Dates: end: 20120503
  3. SYNTHROID [Concomitant]
  4. PANTOPRAZOLE [Concomitant]
  5. CYMBALTA [Concomitant]
  6. LORAZEPAM [Concomitant]

REACTIONS (1)
  - Diarrhoea [Recovering/Resolving]
